FAERS Safety Report 23172458 (Version 1)
Quarter: 2023Q4

REPORT INFORMATION
  Report Type: Spontaneous
  Country: US (occurrence: None)
  Receive Date: 20231110
  Receipt Date: 20231110
  Transmission Date: 20240110
  Serious: Yes (Death, Other)
  Sender: FDA-Public Use
  Company Number: 2023A255584

PATIENT
  Age: 62 Year
  Sex: Female

DRUGS (5)
  1. OSIMERTINIB [Suspect]
     Active Substance: OSIMERTINIB
     Indication: Lung adenocarcinoma
     Route: 048
  2. ENHERTU [Suspect]
     Active Substance: FAM-TRASTUZUMAB DERUXTECAN-NXKI
     Indication: Lung adenocarcinoma
     Route: 042
  3. PEMETREXED [Concomitant]
     Active Substance: PEMETREXED
  4. PEMBROLIZUMAB [Concomitant]
     Active Substance: PEMBROLIZUMAB
  5. RYBREVANT [Concomitant]
     Active Substance: AMIVANTAMAB-VMJW

REACTIONS (6)
  - Acute respiratory failure [Fatal]
  - Pleural effusion [Unknown]
  - Bone lesion [Unknown]
  - Acquired gene mutation [Unknown]
  - Drug resistance [Unknown]
  - Pulmonary oedema [Unknown]
